FAERS Safety Report 23423564 (Version 5)
Quarter: 2024Q3

REPORT INFORMATION
  Report Type: Spontaneous
  Country: IT (occurrence: IT)
  Receive Date: 20240119
  Receipt Date: 20240912
  Transmission Date: 20241016
  Serious: Yes (Other)
  Sender: BAUSCH AND LOMB
  Company Number: IT-BAUSCH-BL-2024-000834

PATIENT
  Age: 69 Year
  Sex: Female

DRUGS (2)
  1. RIFAXIMIN [Suspect]
     Active Substance: RIFAXIMIN
     Indication: Vomiting
     Route: 048
     Dates: start: 202401, end: 2024
  2. RIFAXIMIN [Suspect]
     Active Substance: RIFAXIMIN
     Indication: Diarrhoea

REACTIONS (17)
  - Blood test abnormal [Unknown]
  - Haematochezia [Unknown]
  - Lip haemorrhage [Unknown]
  - Anal fissure [Unknown]
  - Nephrolithiasis [Recovered/Resolved]
  - Gait disturbance [Recovering/Resolving]
  - Eye disorder [Recovered/Resolved]
  - Balance disorder [Recovering/Resolving]
  - Oral herpes [Not Recovered/Not Resolved]
  - Herpes simplex otitis externa [Not Recovered/Not Resolved]
  - Stress [Unknown]
  - Lip dry [Unknown]
  - Neck pain [Unknown]
  - Ear pain [Not Recovered/Not Resolved]
  - Dizziness [Unknown]
  - Headache [Unknown]
  - Intentional underdose [Unknown]

NARRATIVE: CASE EVENT DATE: 20240101
